FAERS Safety Report 24524799 (Version 1)
Quarter: 2024Q4

REPORT INFORMATION
  Report Type: Report from Study
  Country: US (occurrence: US)
  Receive Date: 20241019
  Receipt Date: 20241019
  Transmission Date: 20250114
  Serious: Yes (Other)
  Sender: ABBVIE
  Company Number: US-ABBVIE-5968221

PATIENT
  Sex: Male

DRUGS (1)
  1. CREON [Suspect]
     Active Substance: PANCRELIPASE AMYLASE\PANCRELIPASE LIPASE\PANCRELIPASE PROTEASE
     Indication: Product used for unknown indication
     Route: 048
     Dates: start: 20080901

REACTIONS (6)
  - Leukaemia [Unknown]
  - Asthenia [Unknown]
  - Fall [Unknown]
  - Oxygen saturation decreased [Unknown]
  - Wound [Unknown]
  - Contusion [Unknown]
